FAERS Safety Report 25189396 (Version 1)
Quarter: 2025Q2

REPORT INFORMATION
  Report Type: Spontaneous
  Country: IT (occurrence: IT)
  Receive Date: 20250411
  Receipt Date: 20250411
  Transmission Date: 20250716
  Serious: Yes (Other)
  Sender: ASTELLAS
  Company Number: IT-ASTELLAS-2025-AER-019417

PATIENT
  Age: 57 Year
  Sex: Male

DRUGS (3)
  1. TACROLIMUS [Suspect]
     Active Substance: TACROLIMUS
     Indication: Renal transplant
     Route: 065
  2. EVEROLIMUS [Concomitant]
     Active Substance: EVEROLIMUS
     Indication: Renal transplant
     Route: 065
  3. THYMOGLOBULIN [Concomitant]
     Active Substance: LAPINE T-LYMPHOCYTE IMMUNE GLOBULIN
     Indication: Renal transplant
     Route: 065

REACTIONS (5)
  - Polyomavirus-associated nephropathy [Recovered/Resolved]
  - Renal cell carcinoma [Recovering/Resolving]
  - Vena cava thrombosis [Recovering/Resolving]
  - Graft thrombosis [Recovering/Resolving]
  - Clear cell renal cell carcinoma [Recovering/Resolving]
